FAERS Safety Report 9492557 (Version 1)
Quarter: 2013Q3

REPORT INFORMATION
  Report Type: Spontaneous
  Country: SK (occurrence: SK)
  Receive Date: 20130830
  Receipt Date: 20130830
  Transmission Date: 20140515
  Serious: Yes (Other)
  Sender: FDA-Public Use
  Company Number: SK-BAXTER-2013BAX033889

PATIENT
  Age: 9 Year
  Sex: Female

DRUGS (2)
  1. KIOVIG 100 MG/ML INF?ZNY INTRAVEN?ZNY ROZTOK [Suspect]
     Indication: HAEMOLYTIC URAEMIC SYNDROME
     Dosage: 2 G/KG
  2. MYCOPHENOLIC ACID [Suspect]
     Indication: HAEMOLYTIC URAEMIC SYNDROME
     Dosage: 2X500 MG

REACTIONS (2)
  - Renal failure [Unknown]
  - Drug ineffective [Not Recovered/Not Resolved]
